FAERS Safety Report 8536495-1 (Version None)
Quarter: 2012Q3

REPORT INFORMATION
  Report Type: 
  Country: None (occurrence: None)
  Receive Date: 20120725
  Receipt Date: 20120720
  Transmission Date: 20120928
  Serious: Yes (Other)
  Sender: FDA-Public Use
  Company Number: PHHY2012BR063002

PATIENT
  Age: 62 Year
  Sex: Male

DRUGS (2)
  1. CATAFLAM [Suspect]
     Indication: OROPHARYNGEAL PAIN
     Dosage: 1 DF, TID (1 TABLET EVERY 8 HOURS)
     Route: 048
  2. CATAFLAM [Suspect]
     Indication: PAIN
     Dosage: 60 G, UNK
     Dates: end: 20120718

REACTIONS (9)
  - PAIN [None]
  - TORTICOLLIS [None]
  - DRUG EFFECT DECREASED [None]
  - APPLICATION SITE RASH [None]
  - APPLICATION SITE SWELLING [None]
  - EXPIRED DRUG ADMINISTERED [None]
  - HYPERSENSITIVITY [None]
  - APPLICATION SITE PUSTULES [None]
  - APPLICATION SITE ERYTHEMA [None]
